FAERS Safety Report 7502133-X (Version None)
Quarter: 2011Q2

REPORT INFORMATION
  Report Type: 
  Country: None (occurrence: None)
  Receive Date: 20110525
  Receipt Date: 20110524
  Transmission Date: 20111010
  Serious: Yes (Other)
  Sender: FDA-Public Use
  Company Number: JP-PFIZER INC-2011013517

PATIENT
  Sex: Female

DRUGS (2)
  1. LIPITOR [Concomitant]
     Dosage: UNK
     Route: 048
  2. CADUET [Suspect]
     Dosage: UNK
     Route: 048

REACTIONS (2)
  - SKIN DISORDER [None]
  - BLOOD CREATINE PHOSPHOKINASE INCREASED [None]
